FAERS Safety Report 23587413 (Version 1)
Quarter: 2024Q1

REPORT INFORMATION
  Report Type: Spontaneous
  Country: CA (occurrence: CA)
  Receive Date: 20240301
  Receipt Date: 20240301
  Transmission Date: 20240409
  Serious: Yes (Other)
  Sender: FDA-Public Use
  Company Number: CA-PFIZER INC-202400053926

PATIENT
  Age: 67 Year
  Sex: Male

DRUGS (3)
  1. METHOTREXATE SODIUM [Suspect]
     Active Substance: METHOTREXATE SODIUM
     Indication: Sarcoidosis
     Dosage: 15-20 MG PO WEEKLY
     Route: 048
     Dates: start: 202212
  2. HYDROXYCHLOROQUINE [Concomitant]
     Active Substance: HYDROXYCHLOROQUINE
     Dosage: UNK
  3. PREDNISONE [Concomitant]
     Active Substance: PREDNISONE
     Dosage: UNK

REACTIONS (7)
  - Chronic kidney disease [Unknown]
  - Acute kidney injury [Unknown]
  - Hypercalcaemia [Unknown]
  - Alanine aminotransferase increased [Unknown]
  - Parotid gland enlargement [Unknown]
  - Rash [Unknown]
  - Off label use [Unknown]
